FAERS Safety Report 25943133 (Version 2)
Quarter: 2025Q4

REPORT INFORMATION
  Report Type: Spontaneous
  Country: RS (occurrence: RS)
  Receive Date: 20251021
  Receipt Date: 20251204
  Transmission Date: 20260119
  Serious: Yes (Death, Other)
  Sender: ADMA BIOLOGICS
  Company Number: RS-ADMA BIOLOGICS INC.-RS-2025ADM000338

PATIENT
  Age: 42 Year
  Sex: Female

DRUGS (7)
  1. HUMAN IMMUNOGLOBULIN G [Suspect]
     Active Substance: HUMAN IMMUNOGLOBULIN G
     Indication: Toxic epidermal necrolysis
     Dosage: 2 G/KG OVER 5 DAYS, UNK
     Route: 042
  2. AZITHROMYCIN [Concomitant]
     Active Substance: AZITHROMYCIN
     Indication: Mucosal inflammation
     Dosage: UNK, UNK
     Route: 065
  3. AZITHROMYCIN [Concomitant]
     Active Substance: AZITHROMYCIN
     Indication: Toxic epidermal necrolysis
  4. AZITHROMYCIN [Concomitant]
     Active Substance: AZITHROMYCIN
     Indication: Stevens-Johnson syndrome
  5. METHYLPREDNISOLONE [Concomitant]
     Active Substance: METHYLPREDNISOLONE
     Indication: Mucosal inflammation
     Dosage: UNK, UNK
     Route: 065
  6. METHYLPREDNISOLONE [Concomitant]
     Active Substance: METHYLPREDNISOLONE
     Indication: Toxic epidermal necrolysis
  7. METHYLPREDNISOLONE [Concomitant]
     Active Substance: METHYLPREDNISOLONE
     Indication: Stevens-Johnson syndrome

REACTIONS (5)
  - Septic shock [Fatal]
  - Sepsis [Unknown]
  - Respiratory failure [Unknown]
  - Acute kidney injury [Unknown]
  - Off label use [Unknown]
